FAERS Safety Report 9122429 (Version 1)
Quarter: 2013Q1

REPORT INFORMATION
  Report Type: Spontaneous
  Country: IT (occurrence: IT)
  Receive Date: 20130227
  Receipt Date: 20130227
  Transmission Date: 20140127
  Serious: Yes (Other)
  Sender: FDA-Public Use
  Company Number: IT-BRISTOL-MYERS SQUIBB COMPANY-17406885

PATIENT
  Age: 79 Year
  Sex: Female

DRUGS (6)
  1. COUMADIN TABS 5 MG [Suspect]
     Indication: ATRIAL FIBRILLATION
     Route: 048
     Dates: start: 20051012, end: 20130207
  2. FLUIMUCIL [Suspect]
     Indication: RHINORRHOEA
     Dosage: 600 MG TABLETS
     Route: 048
     Dates: start: 20130128, end: 20130204
  3. KLACID [Suspect]
     Indication: BRONCHOPNEUMONIA
     Dosage: 500 MG TABLETS
     Route: 048
     Dates: start: 20130128, end: 20130204
  4. RATACAND PLUS [Concomitant]
     Dosage: 1DF: 16/12.5 MG TABLETS
  5. DILZENE [Concomitant]
     Dosage: 120 MG TABLETS
  6. LASIX [Concomitant]
     Dosage: 25 MG TABLETS

REACTIONS (2)
  - Bronchopneumonia [Unknown]
  - International normalised ratio increased [Recovering/Resolving]
